FAERS Safety Report 6792357 (Version 3)
Quarter: 2020Q3

REPORT INFORMATION
  Report Type: Report from Study
  Country: US (occurrence: US)
  Receive Date: 20081021
  Receipt Date: 20090722
  Transmission Date: 20201105
  Serious: Yes (Death)
  Sender: FDA-Public Use
  Company Number: US-ROCHE-590795

PATIENT
  Age: 78 Year
  Sex: Female

DRUGS (1)
  1. IBANDRONIC ACID. [Suspect]
     Active Substance: IBANDRONIC ACID
     Indication: OSTEOPOROSIS
     Route: 065
     Dates: start: 2006, end: 20080811

REACTIONS (5)
  - Cardio-respiratory arrest [Fatal]
  - Small intestinal obstruction [Fatal]
  - Sepsis [Fatal]
  - Intestinal fistula [Fatal]
  - Post procedural complication [Fatal]

NARRATIVE: CASE EVENT DATE: 20080914
